FAERS Safety Report 8335923-4 (Version None)
Quarter: 2012Q2

REPORT INFORMATION
  Report Type: 
  Country: None (occurrence: None)
  Receive Date: 20120504
  Receipt Date: 20120430
  Transmission Date: 20120825
  Serious: Yes (Hospitalization)
  Sender: FDA-Public Use
  Company Number: US-PFIZER INC-2012106268

PATIENT
  Sex: Female
  Weight: 62.585 kg

DRUGS (5)
  1. TRAZODONE [Concomitant]
     Dosage: UNK, 1X/DAY
  2. EFFEXOR XR [Suspect]
     Dosage: UNK
     Route: 048
  3. PERCOCET [Concomitant]
     Indication: PAIN
     Dosage: UNK
  4. NEURONTIN [Concomitant]
     Indication: FIBROMYALGIA
     Dosage: UNK
  5. EFFEXOR XR [Suspect]
     Indication: MAJOR DEPRESSION
     Dosage: 150 MG, 1X/DAY
     Route: 048
     Dates: start: 20060101

REACTIONS (2)
  - DRUG EFFECT DECREASED [None]
  - SUICIDE ATTEMPT [None]
